FAERS Safety Report 4673885-1 (Version None)
Quarter: 2005Q2

REPORT INFORMATION
  Report Type: 
  Country: None (occurrence: None)
  Receive Date: 20050523
  Receipt Date: 20050407
  Transmission Date: 20051028
  Serious: No
  Sender: FDA-Public Use
  Company Number: HQWYE041715APR05

PATIENT
  Age: 51 Year
  Sex: Female
  Weight: 88.98 kg

DRUGS (2)
  1. ALAVERT D-12 (LORATADINE/PSEUDOEPHEDRINE SULFATE, TABLET, EXTENDED REL [Suspect]
     Indication: HYPERSENSITIVITY
     Dosage: 1 TABLET 1X PER 1 DAY, ORAL
     Route: 048
     Dates: start: 20050405, end: 20050406
  2. WELLBUTRIN XL [Concomitant]

REACTIONS (1)
  - FEELING JITTERY [None]
